FAERS Safety Report 21093408 (Version 2)
Quarter: 2022Q3

REPORT INFORMATION
  Report Type: Report from Study
  Country: ZW (occurrence: ZW)
  Receive Date: 20220718
  Receipt Date: 20220725
  Transmission Date: 20221026
  Serious: Yes (Other)
  Sender: FDA-Public Use
  Company Number: ZW-MYLANLABS-2022M1078514

PATIENT
  Sex: Female

DRUGS (5)
  1. LAMIVUDINE\ZIDOVUDINE [Suspect]
     Active Substance: LAMIVUDINE\ZIDOVUDINE
     Indication: HIV infection
     Dosage: 2 DOSAGE FORM, QD (TAB/CAPS)
     Route: 048
     Dates: start: 20210616
  2. LAMIVUDINE\TENOFOVIR DISOPROXIL FUMARATE [Suspect]
     Active Substance: LAMIVUDINE\TENOFOVIR DISOPROXIL FUMARATE
     Indication: HIV infection
     Dosage: 1 DOSAGE FORM, QD (TAB/CAPS)
     Route: 048
     Dates: start: 20210519, end: 20210615
  3. NORVIR [Suspect]
     Active Substance: RITONAVIR
     Indication: HIV infection
     Dosage: 100 MILLIGRAM, QD
     Route: 048
     Dates: start: 20210616
  4. PREZISTA [Suspect]
     Active Substance: DARUNAVIR ETHANOLATE
     Indication: HIV infection
     Dosage: 800 MILLIGRAM, QD
     Route: 048
     Dates: start: 20210616
  5. TIVICAY [Suspect]
     Active Substance: DOLUTEGRAVIR SODIUM
     Indication: HIV infection
     Dosage: 50 MILLIGRAM, QD
     Route: 048
     Dates: start: 20210519, end: 20210615

REACTIONS (2)
  - Abortion spontaneous [Recovered/Resolved]
  - Maternal exposure during pregnancy [Recovered/Resolved]

NARRATIVE: CASE EVENT DATE: 20210915
